FAERS Safety Report 9479125 (Version 1)
Quarter: 2013Q3

REPORT INFORMATION
  Report Type: Spontaneous
  Country: BR (occurrence: BR)
  Receive Date: 20130827
  Receipt Date: 20130827
  Transmission Date: 20140515
  Serious: Yes (Life-Threatening, Hospitalization)
  Sender: FDA-Public Use
  Company Number: BR-ASTRAZENECA-2013SE65599

PATIENT
  Age: 66 Year
  Sex: Female

DRUGS (5)
  1. CRESTOR [Suspect]
     Route: 048
  2. BRILINTA [Suspect]
     Route: 048
     Dates: start: 201301
  3. CARVEDILOL [Concomitant]
  4. AMARYL [Concomitant]
  5. ASA [Concomitant]

REACTIONS (2)
  - Tracheal injury [Unknown]
  - Dyspnoea [Unknown]
